FAERS Safety Report 24329121 (Version 1)
Quarter: 2024Q3

REPORT INFORMATION
  Report Type: Spontaneous
  Country: JP (occurrence: JP)
  Receive Date: 20240917
  Receipt Date: 20240917
  Transmission Date: 20241017
  Serious: Yes (Hospitalization, Other)
  Sender: SANDOZ
  Company Number: JP-MLMSERVICE-20240906-PI184172-00218-1

PATIENT
  Sex: Female

DRUGS (1)
  1. METHOTREXATE [Suspect]
     Active Substance: METHOTREXATE
     Indication: Product used for unknown indication
     Dosage: ADMINISTERED 6 YEARS AGO
     Route: 048

REACTIONS (6)
  - Aortic aneurysm [Unknown]
  - Aortic valve incompetence [Unknown]
  - Endocarditis noninfective [Unknown]
  - Diffuse large B-cell lymphoma [Recovered/Resolved]
  - Cerebrovascular accident [Recovered/Resolved]
  - Lymphoproliferative disorder [Unknown]
